FAERS Safety Report 22146836 (Version 1)
Quarter: 2023Q1

REPORT INFORMATION
  Report Type: Spontaneous
  Country: IT (occurrence: None)
  Receive Date: 20230328
  Receipt Date: 20230328
  Transmission Date: 20230417
  Serious: Yes (Hospitalization, Other)
  Sender: FDA-Public Use
  Company Number: None

PATIENT
  Age: 70 Year
  Sex: Female
  Weight: 75 kg

DRUGS (5)
  1. VANCOMYCIN HYDROCHLORIDE [Suspect]
     Active Substance: VANCOMYCIN HYDROCHLORIDE
     Indication: Peritonitis
     Dosage: 1000 MG/L
     Route: 033
     Dates: start: 20220916, end: 20220925
  2. CEFEPIME QILU [Concomitant]
     Indication: Peritonitis
     Dosage: 500 MG, FOUR TIMES ON FIRST DAY AS ATTACK DOSE, 250 MG FOUR TIMES ON DAY TWO
     Route: 033
     Dates: start: 20220916, end: 20220926
  3. FLECAINIDE ACETATE [Concomitant]
     Active Substance: FLECAINIDE ACETATE
     Indication: Product used for unknown indication
     Dosage: 1/2 CP
     Route: 048
     Dates: start: 20220916, end: 20221010
  4. ATENOLOLO ABC [Concomitant]
     Indication: Product used for unknown indication
     Dosage: 1/2 CP
     Route: 048
     Dates: start: 20220916, end: 20221010
  5. FLUCONAZOLO ABC [Concomitant]
     Indication: Peritonitis
     Dosage: 200 MG/ML; 200 MG/DAY
     Route: 042
     Dates: start: 20220918, end: 20221006

REACTIONS (1)
  - White blood cell count increased [Recovered/Resolved]

NARRATIVE: CASE EVENT DATE: 20220916
